FAERS Safety Report 18128224 (Version 6)
Quarter: 2022Q1

REPORT INFORMATION
  Report Type: Report from Study
  Country: US (occurrence: US)
  Receive Date: 20200810
  Receipt Date: 20220216
  Transmission Date: 20220423
  Serious: Yes (Hospitalization, Other)
  Sender: FDA-Public Use
  Company Number: US-NOVARTISPH-NVSC2020US221044

PATIENT
  Sex: Female

DRUGS (1)
  1. MAYZENT [Suspect]
     Active Substance: SIPONIMOD
     Indication: Product used for unknown indication
     Dosage: 2 MG, QD
     Route: 048

REACTIONS (8)
  - Fall [Unknown]
  - Hypertension [Unknown]
  - Headache [Unknown]
  - Upper limb fracture [Unknown]
  - Loss of consciousness [Unknown]
  - Breast cancer [Unknown]
  - Hypoaesthesia [Recovering/Resolving]
  - Product dose omission issue [Unknown]
